FAERS Safety Report 7358148-8 (Version None)
Quarter: 2011Q1

REPORT INFORMATION
  Report Type: 
  Country: None (occurrence: None)
  Receive Date: 20110317
  Receipt Date: 20110310
  Transmission Date: 20110831
  Serious: Yes (Hospitalization, Other)
  Sender: FDA-Public Use
  Company Number: CA-ELI_LILLY_AND_COMPANY-CA201101001478

PATIENT
  Sex: Male

DRUGS (3)
  1. CIALIS [Suspect]
     Dosage: 1 D/F, UNK
  2. COVERSYL [Concomitant]
     Dosage: 2 MG, UNK
  3. LIPITOR [Concomitant]
     Dosage: 1 D/F, UNK

REACTIONS (2)
  - GLIOBLASTOMA [None]
  - CEREBROVASCULAR ACCIDENT [None]
